FAERS Safety Report 16044194 (Version 1)
Quarter: 2019Q1

REPORT INFORMATION
  Report Type: Spontaneous
  Country: US (occurrence: US)
  Receive Date: 20190306
  Receipt Date: 20190306
  Transmission Date: 20190418
  Serious: Yes (Other)
  Sender: FDA-Public Use
  Company Number: US-VIFOR (INTERNATIONAL) INC.-VIT-2019-01846

PATIENT
  Sex: Male

DRUGS (5)
  1. ELIQUIS [Concomitant]
     Active Substance: APIXABAN
  2. COLESTYRAMINE [Concomitant]
     Active Substance: CHOLESTYRAMINE
     Indication: GASTROINTESTINAL DISORDER
  3. METOPROLOL. [Concomitant]
     Active Substance: METOPROLOL
  4. VELTASSA [Suspect]
     Active Substance: PATIROMER
     Indication: BLOOD POTASSIUM INCREASED
     Dates: start: 201812
  5. SYNTHROID [Concomitant]
     Active Substance: LEVOTHYROXINE SODIUM

REACTIONS (4)
  - Product dose omission [Unknown]
  - Throat cancer [Unknown]
  - Product preparation issue [Unknown]
  - Inappropriate schedule of product administration [Unknown]

NARRATIVE: CASE EVENT DATE: 2018
